FAERS Safety Report 8156184-5 (Version None)
Quarter: 2012Q1

REPORT INFORMATION
  Report Type: 
  Country: None (occurrence: None)
  Receive Date: 20120216
  Receipt Date: 20120201
  Transmission Date: 20120608
  Serious: Yes (Death)
  Sender: FDA-Public Use
  Company Number: KAD201202-000133

PATIENT
  Age: 31 Year
  Sex: Male

DRUGS (3)
  1. DEFERIPRONE (DEFERIPRONE) [Suspect]
     Indication: IRON OVERLOAD
  2. PEGASYS [Suspect]
     Indication: HEPATITIS C
     Dosage: 180 MCG, ONE TIME WEEKLY, FOR 48 WEEKS
  3. RIBAVIRIN [Suspect]
     Indication: HEPATITIS C
     Dosage: 1000-1200 MG, DAILY, FOR 48 WEEKS

REACTIONS (4)
  - NEUTROPENIA [None]
  - IRON OVERLOAD [None]
  - INFLUENZA LIKE ILLNESS [None]
  - SEPSIS [None]
